FAERS Safety Report 5718291-3 (Version None)
Quarter: 2008Q2

REPORT INFORMATION
  Report Type: 
  Country: None (occurrence: None)
  Receive Date: 20080425
  Receipt Date: 20070705
  Transmission Date: 20081010
  Serious: No
  Sender: FDA-Public Use
  Company Number: US-ASTRAZENECA-2007UW15861

PATIENT
  Age: 69 Year
  Sex: Female
  Weight: 59 kg

DRUGS (5)
  1. ZOMIG [Suspect]
     Indication: HEADACHE
     Route: 048
  2. ZOMIG [Suspect]
     Indication: FACIAL PAIN
     Route: 048
  3. PROPRANOLOL [Concomitant]
  4. BACLAFEN [Concomitant]
  5. XANAX [Concomitant]

REACTIONS (4)
  - BLOOD PRESSURE IMMEASURABLE [None]
  - FATIGUE [None]
  - NERVOUSNESS [None]
  - SOMNOLENCE [None]
